FAERS Safety Report 8235184-0 (Version None)
Quarter: 2012Q1

REPORT INFORMATION
  Report Type: 
  Country: None (occurrence: None)
  Receive Date: 20120326
  Receipt Date: 20120313
  Transmission Date: 20120608
  Serious: Yes (Other)
  Sender: FDA-Public Use
  Company Number: CA-ROCHE-1009640

PATIENT
  Sex: Female

DRUGS (6)
  1. OMALIZUMAB [Suspect]
     Dates: start: 20090630
  2. PREDNISONE [Concomitant]
  3. PULMICORT [Concomitant]
  4. OMALIZUMAB [Suspect]
     Indication: ASTHMA
     Route: 058
     Dates: start: 20090205
  5. SALINEX [Concomitant]
  6. SYMBICORT [Concomitant]

REACTIONS (11)
  - PNEUMONIA [None]
  - ECCHYMOSIS [None]
  - BRONCHITIS [None]
  - INFLUENZA [None]
  - UPPER RESPIRATORY TRACT INFECTION [None]
  - PRODUCTIVE COUGH [None]
  - HYPOTENSION [None]
  - SINUSITIS [None]
  - SCIATIC NERVE INJURY [None]
  - FALL [None]
  - NASOPHARYNGITIS [None]
